FAERS Safety Report 12970677 (Version 2)
Quarter: 2018Q2

REPORT INFORMATION
  Report Type: Spontaneous
  Country: DE (occurrence: DE)
  Receive Date: 20161123
  Receipt Date: 20180621
  Transmission Date: 20180711
  Serious: Yes (Hospitalization)
  Sender: FDA-Public Use
  Company Number: DE-ALLERGAN-1677495US

PATIENT
  Age: 57 Year
  Sex: Male

DRUGS (9)
  1. AMISULPRIDE [Suspect]
     Active Substance: AMISULPRIDE
     Dosage: 600 MG, QD
     Route: 048
     Dates: start: 20160210, end: 20160212
  2. ASENAPINE MALEATE - BP [Suspect]
     Active Substance: ASENAPINE MALEATE
     Indication: SCHIZOPHRENIA
     Dosage: 10 MG, QD
     Route: 048
     Dates: start: 20160121, end: 20160202
  3. AMISULPRIDE [Suspect]
     Active Substance: AMISULPRIDE
     Dosage: 200 MG, QD
     Route: 048
     Dates: start: 20160128, end: 20160131
  4. ASENAPINE MALEATE - BP [Suspect]
     Active Substance: ASENAPINE MALEATE
     Dosage: 5 MG, QD
     Route: 048
     Dates: start: 20160120, end: 20160120
  5. AMISULPRIDE [Suspect]
     Active Substance: AMISULPRIDE
     Dosage: 400 MG, QD
     Route: 048
     Dates: start: 20160201, end: 20160208
  6. CLOZAPINE. [Suspect]
     Active Substance: CLOZAPINE
     Indication: SCHIZOPHRENIA
     Dosage: 400 MG, QD
     Route: 048
     Dates: end: 20160212
  7. AMISULPRIDE [Suspect]
     Active Substance: AMISULPRIDE
     Dosage: 500 MG, QD
     Route: 048
     Dates: start: 20160209, end: 20160209
  8. BISOPROLOL [Concomitant]
     Active Substance: BISOPROLOL
     Indication: PRODUCT USED FOR UNKNOWN INDICATION
     Dosage: UNK
     Dates: start: 20160113
  9. AMISULPRIDE [Suspect]
     Active Substance: AMISULPRIDE
     Indication: SCHIZOPHRENIA
     Dosage: 100 MG, QD
     Route: 048
     Dates: start: 20160127, end: 20160127

REACTIONS (5)
  - Hypophagia [Unknown]
  - Off label use [Unknown]
  - Faecaloma [Recovered/Resolved]
  - Incorrect route of drug administration [Unknown]
  - Constipation [Recovered/Resolved]

NARRATIVE: CASE EVENT DATE: 20160203
